FAERS Safety Report 25088802 (Version 6)
Quarter: 2025Q3

REPORT INFORMATION
  Report Type: Spontaneous
  Country: AR (occurrence: AR)
  Receive Date: 20250318
  Receipt Date: 20250918
  Transmission Date: 20251020
  Serious: Yes (Hospitalization, Other)
  Sender: SANDOZ
  Company Number: AR-SANDOZ-SDZ2024AR048113

PATIENT
  Age: 13 Year
  Sex: Female
  Weight: 32.5 kg

DRUGS (1)
  1. OMNITROPE [Suspect]
     Active Substance: SOMATROPIN
     Indication: Growth retardation
     Dosage: 1.4 MG, QD, 7 DAYS A WEEK (5 MG)
     Route: 058
     Dates: start: 20231218

REACTIONS (8)
  - Gastrointestinal haemorrhage [Unknown]
  - Intestinal resection [Unknown]
  - Gastrointestinal infection [Unknown]
  - Abdominal discomfort [Unknown]
  - Inflammation [Unknown]
  - Platelet count decreased [Unknown]
  - Platelet production decreased [Unknown]
  - Product availability issue [Unknown]

NARRATIVE: CASE EVENT DATE: 20240201
